FAERS Safety Report 11148939 (Version 2)
Quarter: 2016Q2

REPORT INFORMATION
  Report Type: Spontaneous
  Country: DK (occurrence: DK)
  Receive Date: 20150529
  Receipt Date: 20160622
  Transmission Date: 20160815
  Serious: Yes (Hospitalization)
  Sender: FDA-Public Use
  Company Number: DK-PFIZER INC-2015180782

PATIENT
  Age: 92 Year
  Sex: Female

DRUGS (16)
  1. CONTALGIN [Suspect]
     Active Substance: MORPHINE SULFATE
     Indication: PAIN
     Dosage: STRENGTH: 5 MG
     Route: 048
     Dates: start: 20140802
  2. CONTALGIN [Suspect]
     Active Substance: MORPHINE SULFATE
     Dosage: 5 UNK, UNK
     Route: 048
     Dates: end: 20150509
  3. CITALOPRAM [Suspect]
     Active Substance: CITALOPRAM HYDROBROMIDE
     Dosage: 5 MG, 1X/DAY
     Route: 048
     Dates: start: 20150507, end: 20150517
  4. GAVISCON /00237601/ [Concomitant]
     Active Substance: ALUMINUM HYDROXIDE\MAGNESIUM CARBONATE
     Indication: GASTROOESOPHAGEAL REFLUX DISEASE
     Dosage: 20 ML, AS NEEDED
     Route: 048
  5. LAXOBERAL [Concomitant]
     Active Substance: SODIUM PICOSULFATE
     Dosage: UNK, AS NEEDED
     Route: 048
  6. PINEX [Concomitant]
     Active Substance: ACETAMINOPHEN
     Indication: PAIN
     Dosage: 500 MG, 3X/DAY
     Route: 048
  7. ELTROXIN [Concomitant]
     Active Substance: LEVOTHYROXINE
     Indication: MYXOEDEMA
     Dosage: 100 UG, 1X/DAY
     Route: 048
  8. AMLODIPIN BLUEFISH [Suspect]
     Active Substance: AMLODIPINE BESYLATE
     Dosage: 5 MG, 1X/DAY
     Route: 048
     Dates: start: 20150507
  9. BETOLVEX /00056201/ [Concomitant]
     Active Substance: CYANOCOBALAMIN
     Indication: VITAMIN B12 DEFICIENCY
     Dosage: 1 MG, 1X/DAY
     Route: 048
     Dates: end: 20151123
  10. ISOPTIN [Concomitant]
     Active Substance: VERAPAMIL HYDROCHLORIDE
     Dosage: 120 MG, 1X/DAY
     Dates: end: 20150212
  11. CITALOPRAM [Suspect]
     Active Substance: CITALOPRAM HYDROBROMIDE
     Indication: DEPRESSION
     Dosage: 10 MG, 1X/DAY
     Route: 048
     Dates: start: 20140830
  12. ESTROFEM /00045401/ [Concomitant]
     Indication: HORMONE THERAPY
     Dosage: 1 MG, 2X/WEEK
     Route: 048
  13. AMLODIPIN BLUEFISH [Suspect]
     Active Substance: AMLODIPINE BESYLATE
     Indication: HYPERTENSION
     Dosage: STRENGTH: 5 MG.
     Route: 048
     Dates: start: 20141229
  14. DIURAL /00016901/ [Concomitant]
     Indication: DIURETIC THERAPY
     Dosage: 40 MG, 1X/DAY
     Route: 048
  15. LOSARTAN BLUEFISH [Suspect]
     Active Substance: LOSARTAN
     Indication: HYPERTENSION
     Dosage: STRENGTH: 50 MG
     Route: 048
     Dates: start: 20030801
  16. PANTOPRAZOLE [Concomitant]
     Active Substance: PANTOPRAZOLE SODIUM
     Indication: PROPHYLAXIS AGAINST GASTROINTESTINAL ULCER
     Dosage: 40 MG, 1X/DAY
     Route: 048

REACTIONS (3)
  - Faeces hard [Not Recovered/Not Resolved]
  - Waist circumference increased [Recovered/Resolved]
  - Constipation [Not Recovered/Not Resolved]

NARRATIVE: CASE EVENT DATE: 201409
